FAERS Safety Report 4695668-9 (Version None)
Quarter: 2005Q2

REPORT INFORMATION
  Report Type: 
  Country: None (occurrence: None)
  Receive Date: 20050608
  Receipt Date: 20050209
  Transmission Date: 20051028
  Serious: Yes (Hospitalization)
  Sender: FDA-Public Use
  Company Number: A03200500429

PATIENT
  Age: 66 Year
  Sex: Male
  Weight: 66.6788 kg

DRUGS (5)
  1. ELOXATIN [Suspect]
     Indication: RECTAL CANCER METASTATIC
     Dosage: 150 MG OTHER - INTRAVENOUS NOS
     Route: 042
     Dates: start: 20050127, end: 20050127
  2. FLUOROURACIL [Concomitant]
  3. LEUCOVORIN [Concomitant]
  4. DEXAMETHASONE [Concomitant]
  5. DIPHENHYDRAMINE HCL [Concomitant]

REACTIONS (8)
  - ANAEMIA [None]
  - CHILLS [None]
  - DYSPNOEA [None]
  - HYPERTENSION [None]
  - MALAISE [None]
  - PYREXIA [None]
  - TACHYCARDIA [None]
  - THROMBOCYTOPENIA [None]
